FAERS Safety Report 10574808 (Version 1)
Quarter: 2014Q4

REPORT INFORMATION
  Report Type: Spontaneous
  Country: US (occurrence: US)
  Receive Date: 20141110
  Receipt Date: 20141110
  Transmission Date: 20150529
  Serious: No
  Sender: FDA-Public Use
  Company Number: US-009507513-1410USA009692

PATIENT
  Sex: Female
  Weight: 48.53 kg

DRUGS (1)
  1. NEXPLANON [Suspect]
     Active Substance: ETONOGESTREL
     Indication: CONTRACEPTION
     Dosage: UNK
     Route: 059
     Dates: start: 20140827

REACTIONS (4)
  - Implant site pain [Not Recovered/Not Resolved]
  - Implant site reaction [Unknown]
  - Discomfort [Not Recovered/Not Resolved]
  - Application site bruise [Unknown]

NARRATIVE: CASE EVENT DATE: 2014
